FAERS Safety Report 19387441 (Version 1)
Quarter: 2021Q2

REPORT INFORMATION
  Report Type: Spontaneous
  Country: US (occurrence: US)
  Receive Date: 20210607
  Receipt Date: 20210607
  Transmission Date: 20210717
  Serious: Yes (Hospitalization, Other)
  Sender: FDA-Public Use
  Company Number: None

PATIENT
  Age: 74 Year
  Sex: Female
  Weight: 57.2 kg

DRUGS (1)
  1. TISAGENLECLEUCEL. [Suspect]
     Active Substance: TISAGENLECLEUCEL
     Indication: DIFFUSE LARGE B-CELL LYMPHOMA
     Dosage: ?          OTHER FREQUENCY:ONCE;?
     Route: 042
     Dates: start: 20210504, end: 20210504

REACTIONS (17)
  - Cytokine release syndrome [None]
  - Hepatic function abnormal [None]
  - Hyperhidrosis [None]
  - Blood pressure systolic decreased [None]
  - Gallbladder disorder [None]
  - Hypoaesthesia [None]
  - Nodule [None]
  - Disease progression [None]
  - Pyrexia [None]
  - Orthostatic hypotension [None]
  - Lymphadenopathy [None]
  - Blood lactate dehydrogenase increased [None]
  - Aspartate aminotransferase increased [None]
  - Eructation [None]
  - Transaminases increased [None]
  - Hyperbilirubinaemia [None]
  - Gastrooesophageal reflux disease [None]

NARRATIVE: CASE EVENT DATE: 20210505
